FAERS Safety Report 7148004-2 (Version None)
Quarter: 2010Q4

REPORT INFORMATION
  Report Type: 
  Country: None (occurrence: None)
  Receive Date: 20101206
  Receipt Date: 20101206
  Transmission Date: 20110411
  Serious: Yes (Life-Threatening, Other)
  Sender: FDA-Public Use
  Company Number: None

PATIENT
  Age: 37 Year
  Sex: Female
  Weight: 92.9874 kg

DRUGS (1)
  1. DEMEROL [Suspect]
     Dosage: 50 MG EVERY 6 HOURS PO
     Route: 048

REACTIONS (5)
  - BURNING SENSATION [None]
  - DYSPHONIA [None]
  - PRURITUS [None]
  - RASH [None]
  - THROAT TIGHTNESS [None]
